FAERS Safety Report 17095755 (Version 1)
Quarter: 2019Q4

REPORT INFORMATION
  Report Type: Spontaneous
  Country: US (occurrence: US)
  Receive Date: 20191201
  Receipt Date: 20191201
  Transmission Date: 20200122
  Serious: No
  Sender: FDA-Public Use
  Company Number: US-AMGEN-USASP2019197462

PATIENT
  Sex: Male

DRUGS (6)
  1. CARVEDILOL. [Concomitant]
     Active Substance: CARVEDILOL
     Dosage: 25 MILLIGRAM
  2. REPATHA [Suspect]
     Active Substance: EVOLOCUMAB
     Indication: HYPERLIPIDAEMIA
     Dosage: 140 MILLIGRAM, Q2WK
     Route: 058
  3. CLOPIDOGREL [Concomitant]
     Active Substance: CLOPIDOGREL BISULFATE
     Dosage: 75 MILLIGRAM
  4. FENOFIBRATE. [Concomitant]
     Active Substance: FENOFIBRATE
  5. LISINOPRIL. [Concomitant]
     Active Substance: LISINOPRIL
  6. EZETIMIBE. [Concomitant]
     Active Substance: EZETIMIBE
     Dosage: 10 MILLIGRAM

REACTIONS (1)
  - Intentional product misuse [Not Recovered/Not Resolved]
